FAERS Safety Report 4629549-3 (Version None)
Quarter: 2005Q2

REPORT INFORMATION
  Report Type: 
  Country: None (occurrence: None)
  Receive Date: 20050405
  Receipt Date: 20050321
  Transmission Date: 20051028
  Serious: Yes (Death)
  Sender: FDA-Public Use
  Company Number: B0375838A

PATIENT
  Sex: 0

DRUGS (3)
  1. MYLERAN [Suspect]
     Dosage: 1 MG/KG SEE DOSAGE TEXT/ ORAL
     Route: 048
  2. ETOPOSIDE [Suspect]
     Dosage: 60 MG/KG/ INTRAVENOUS
     Route: 042
  3. CYCLOPHOSPHAMIDE [Suspect]
     Dosage: 60 MG/KG/ INTRAVENOUS
     Route: 042

REACTIONS (1)
  - INFECTION [None]
